FAERS Safety Report 4996815-1 (Version None)
Quarter: 2006Q2

REPORT INFORMATION
  Report Type: 
  Country: None (occurrence: None)
  Receive Date: 20060509
  Receipt Date: 20060209
  Transmission Date: 20061013
  Serious: Yes (Hospitalization, Other)
  Sender: FDA-Public Use
  Company Number: US-MERCK-0602USA02584

PATIENT
  Age: 58 Year
  Sex: Male
  Weight: 111 kg

DRUGS (2)
  1. VIOXX [Suspect]
     Indication: PROCEDURAL PAIN
     Route: 048
     Dates: start: 20010130, end: 20010501
  2. VIOXX [Suspect]
     Indication: ARTHRALGIA
     Route: 048
     Dates: start: 20010130, end: 20010501

REACTIONS (2)
  - CEREBROVASCULAR ACCIDENT [None]
  - CHEST PAIN [None]
